FAERS Safety Report 6243237-1 (Version None)
Quarter: 2009Q2

REPORT INFORMATION
  Report Type: 
  Country: None (occurrence: None)
  Receive Date: 20090622
  Receipt Date: 20090622
  Transmission Date: 20091009
  Serious: Yes (Hospitalization)
  Sender: FDA-Public Use
  Company Number: None

PATIENT
  Age: 68 Year
  Sex: Female
  Weight: 99.7913 kg

DRUGS (1)
  1. CELESTONE [Suspect]
     Indication: ARTHRITIS
     Dosage: 1 TO 1 1/2 CC ONE TIME
     Dates: start: 20080225, end: 20080225

REACTIONS (5)
  - CARDIAC FAILURE CONGESTIVE [None]
  - DIABETES MELLITUS [None]
  - HEPATIC CIRRHOSIS [None]
  - PAIN [None]
  - WEIGHT INCREASED [None]
